FAERS Safety Report 8872286 (Version 1)
Quarter: 2012Q4

REPORT INFORMATION
  Report Type: 
  Country: US (occurrence: US)
  Receive Date: 20121026
  Receipt Date: 20121026
  Transmission Date: 20130627
  Serious: No
  Sender: FDA-Public Use
  Company Number: US-AMGEN-USASP2012049210

PATIENT
  Age: 57 Year
  Sex: Female
  Weight: 77.1 kg

DRUGS (11)
  1. ENBREL [Suspect]
     Indication: PRODUCT USED FOR UNKNOWN INDICATION
     Dosage: 50 mg, q2wk
  2. CALCIUM [Concomitant]
     Dosage: 500 mg, UNK
  3. VITAMIN D /00107901/ [Concomitant]
     Dosage: 1000 unit, UNK
  4. MULTIVITAMIN                       /00097801/ [Concomitant]
  5. B12                                /00056201/ [Concomitant]
     Dosage: 1 mg, UNK
  6. FISH OIL [Concomitant]
  7. CITALOPRAM [Concomitant]
     Dosage: 10 mg, UNK
  8. TRAMADOL HCL [Concomitant]
     Dosage: 50 mg, UNK
  9. AMBIEN [Concomitant]
     Dosage: 10 mg, UNK
  10. PROGESTERONE [Concomitant]
     Dosage: 100 mg, UNK
  11. CLIMARA [Concomitant]
     Dosage: 0.025 mg, UNK

REACTIONS (7)
  - Dry mouth [Unknown]
  - Flushing [Unknown]
  - Urticaria [Recovered/Resolved]
  - Injection site discolouration [Unknown]
  - Injection site erythema [Unknown]
  - Injection site pruritus [Unknown]
  - Injection site warmth [Unknown]
